FAERS Safety Report 5498878-6 (Version None)
Quarter: 2007Q4

REPORT INFORMATION
  Report Type: 
  Country: None (occurrence: None)
  Receive Date: 20071026
  Receipt Date: 20070731
  Transmission Date: 20080405
  Serious: Yes (Hospitalization)
  Sender: FDA-Public Use
  Company Number: A0667360A

PATIENT
  Age: 73 Year
  Sex: Male

DRUGS (8)
  1. ADVAIR DISKUS 100/50 [Suspect]
     Indication: ASTHMA
     Dosage: 1PUFF TWICE PER DAY
     Route: 055
     Dates: start: 20070315
  2. SYNTHROID [Concomitant]
  3. FOSAMAX [Concomitant]
  4. VITAMINS [Concomitant]
  5. CALCIUM [Concomitant]
  6. MINERAL TAB [Concomitant]
  7. POTASSIUM CHLORIDE [Concomitant]
  8. IMODIUM [Concomitant]

REACTIONS (4)
  - COUGH [None]
  - PNEUMONIA [None]
  - THERAPEUTIC RESPONSE DECREASED [None]
  - WHEEZING [None]
